FAERS Safety Report 16746574 (Version 1)
Quarter: 2019Q3

REPORT INFORMATION
  Report Type: Spontaneous
  Country: JP (occurrence: JP)
  Receive Date: 20190827
  Receipt Date: 20190827
  Transmission Date: 20191005
  Serious: Yes (Hospitalization)
  Sender: FDA-Public Use
  Company Number: JP-B.I. PHARMACEUTICALS,INC./RIDGEFIELD-2019-NB-003909

PATIENT
  Age: 78 Year
  Sex: Female

DRUGS (1)
  1. SPIOLTO RESPIMAT [Suspect]
     Active Substance: OLODATEROL HYDROCHLORIDE\TIOTROPIUM BROMIDE MONOHYDRATE
     Indication: OBSTRUCTIVE AIRWAYS DISORDER
     Dosage: SPIOLTORESPIMAT 28PUFFS,60 PUFFS 2 PUFFS/TIME/DAY
     Route: 055

REACTIONS (1)
  - Disuse syndrome [Not Recovered/Not Resolved]

NARRATIVE: CASE EVENT DATE: 20190730
